FAERS Safety Report 4489156-2 (Version None)
Quarter: 2004Q4

REPORT INFORMATION
  Report Type: 
  Country: None (occurrence: None)
  Receive Date: 20041029
  Receipt Date: 20030609
  Transmission Date: 20050328
  Serious: Yes (Hospitalization, Other)
  Sender: FDA-Public Use
  Company Number: US-AMGEN-KDL039736

PATIENT
  Sex: Female
  Weight: 61.7 kg

DRUGS (5)
  1. PROCRIT [Suspect]
     Indication: PRE-EXISTING DISEASE
     Route: 058
     Dates: start: 20011206, end: 20030602
  2. PEGASYS [Concomitant]
     Dates: start: 20011206
  3. RIBAVIRIN [Concomitant]
     Dates: start: 20011206, end: 20030501
  4. METHADONE HCL [Concomitant]
     Dates: end: 20030602
  5. NEUPOGEN [Concomitant]
     Dates: end: 20030602

REACTIONS (3)
  - BONE MARROW DEPRESSION [None]
  - PANCYTOPENIA [None]
  - THERAPEUTIC RESPONSE DECREASED [None]
